FAERS Safety Report 9087886 (Version 1)
Quarter: 2013Q1

REPORT INFORMATION
  Report Type: Spontaneous
  Country: SE (occurrence: SE)
  Receive Date: 20130201
  Receipt Date: 20130201
  Transmission Date: 20140127
  Serious: Yes (Hospitalization)
  Sender: FDA-Public Use
  Company Number: SE-GALDERMA-SE-GDP-12415395

PATIENT
  Age: 40 Year
  Sex: Female

DRUGS (1)
  1. METRONIDAZOLE [Suspect]
     Indication: RASH
     Route: 061
     Dates: start: 20120830, end: 20120901

REACTIONS (8)
  - Dermatitis allergic [Recovered/Resolved]
  - Dermatitis allergic [Recovered/Resolved]
  - Pharyngeal oedema [Recovered/Resolved]
  - Swelling face [Recovered/Resolved]
  - Blister [Recovered/Resolved]
  - Rash [Recovered/Resolved]
  - Skin burning sensation [Recovered/Resolved]
  - Off label use [Recovered/Resolved]
